FAERS Safety Report 6289237-7 (Version None)
Quarter: 2009Q3

REPORT INFORMATION
  Report Type: 
  Country: None (occurrence: None)
  Receive Date: 20090729
  Receipt Date: 20090729
  Transmission Date: 20100115
  Serious: Yes (Other)
  Sender: FDA-Public Use
  Company Number: None

PATIENT
  Age: 65 Year
  Sex: Male
  Weight: 111.1313 kg

DRUGS (2)
  1. PENTAZOCINE AND NALOXONE HYDROCHLORIDES [Suspect]
     Indication: PAIN IN EXTREMITY
     Dosage: ONE TABLET EVERY 12 HOURS PO
     Route: 048
     Dates: start: 20090720, end: 20090724
  2. PENTAZOCINE AND NALOXONE HYDROCHLORIDES [Suspect]
     Indication: SHOULDER OPERATION
     Dosage: ONE TABLET EVERY 12 HOURS PO
     Route: 048
     Dates: start: 20090720, end: 20090724

REACTIONS (2)
  - DRUG HYPERSENSITIVITY [None]
  - RASH ERYTHEMATOUS [None]
